FAERS Safety Report 5553614-X (Version None)
Quarter: 2007Q4

REPORT INFORMATION
  Report Type: 
  Country: None (occurrence: None)
  Receive Date: 20071213
  Receipt Date: 20071129
  Transmission Date: 20080405
  Serious: Yes (Other)
  Sender: FDA-Public Use
  Company Number: PHBS2007NL16408

PATIENT
  Age: 34 Year
  Sex: Female

DRUGS (2)
  1. GLEEVEC [Suspect]
     Dosage: FETAL DRUG EXPOSURE VIA FATHER
  2. XYZOL [Concomitant]
     Route: 065

REACTIONS (3)
  - ABORTION SPONTANEOUS [None]
  - HEAD CIRCUMFERENCE ABNORMAL [None]
  - TRANSMISSION OF DRUG VIA SEMEN [None]
